FAERS Safety Report 16154760 (Version 3)
Quarter: 2019Q3

REPORT INFORMATION
  Report Type: Spontaneous
  Country: AT (occurrence: AT)
  Receive Date: 20190403
  Receipt Date: 20190806
  Transmission Date: 20191004
  Serious: Yes (Hospitalization, Disabling)
  Sender: FDA-Public Use
  Company Number: AT-BAYER-2019-059878

PATIENT
  Age: 26 Year
  Sex: Female
  Weight: 55 kg

DRUGS (15)
  1. PANTOLOC [PANTOPRAZOLE] [Concomitant]
     Active Substance: PANTOPRAZOLE SODIUM
  2. PROHANCE [Concomitant]
     Active Substance: GADOTERIDOL
     Indication: NUCLEAR MAGNETIC RESONANCE IMAGING
     Dosage: UNK
     Dates: start: 20160520, end: 20160520
  3. AZITHROMYCIN ANHYDROUS. [Concomitant]
     Active Substance: AZITHROMYCIN ANHYDROUS
     Dosage: UNK
     Dates: start: 2018
  4. PROHANCE [Concomitant]
     Active Substance: GADOTERIDOL
     Indication: NUCLEAR MAGNETIC RESONANCE IMAGING
     Dosage: UNK
     Dates: start: 20161216, end: 20161216
  5. ITRACONAZOL [Concomitant]
     Active Substance: ITRACONAZOLE
     Dosage: UNK
     Dates: start: 2018
  6. DEPENDEX [Concomitant]
     Dosage: UNK
     Dates: start: 2018
  7. CORTISONE [Concomitant]
     Active Substance: CORTISONE
     Indication: MULTIPLE SCLEROSIS RELAPSE
     Dosage: 1000 MG, QD
     Route: 042
     Dates: start: 20170304, end: 20170306
  8. PROHANCE [Concomitant]
     Active Substance: GADOTERIDOL
     Indication: NUCLEAR MAGNETIC RESONANCE IMAGING
     Dosage: UNK
     Dates: start: 20170306, end: 20170306
  9. IVERMEC [Concomitant]
     Active Substance: IVERMECTIN
     Dosage: UNK
     Dates: start: 2018
  10. AVELOX [Suspect]
     Active Substance: MOXIFLOXACIN HYDROCHLORIDE
     Indication: PNEUMONIA
     Dosage: 400 MG, QD
     Route: 042
     Dates: start: 20160113
  11. COMBANTRIN [Concomitant]
     Active Substance: PYRANTEL PAMOATE
     Dosage: UNK
     Dates: start: 2018
  12. CISCUTAN [Concomitant]
     Active Substance: ISOTRETINOIN
     Dosage: UNK
     Dates: start: 2018
  13. MOXIFLOXACIN KRKA [Suspect]
     Active Substance: MOXIFLOXACIN HYDROCHLORIDE
     Indication: PNEUMONIA
     Dosage: 7 X 400 MG
     Route: 048
     Dates: start: 20160114, end: 20160120
  14. ANAEROBEX [Concomitant]
     Active Substance: METRONIDAZOLE
     Dosage: UNK
     Dates: start: 2018
  15. DIFLUCAN [Concomitant]
     Active Substance: FLUCONAZOLE
     Dosage: UNK
     Dates: start: 2018

REACTIONS (46)
  - Vision blurred [Recovering/Resolving]
  - Eye pain [Recovering/Resolving]
  - Arthralgia [Recovering/Resolving]
  - Headache [Recovering/Resolving]
  - Aspergillus infection [Unknown]
  - Pain [Not Recovered/Not Resolved]
  - Flatulence [Unknown]
  - Depression [Recovering/Resolving]
  - Hypoaesthesia [Recovering/Resolving]
  - Musculoskeletal pain [Recovering/Resolving]
  - Optic neuritis [Unknown]
  - Fibromyalgia [Not Recovered/Not Resolved]
  - Impaired work ability [Not Recovered/Not Resolved]
  - Peripheral swelling [Recovering/Resolving]
  - Multiple sclerosis [Unknown]
  - Dysbiosis [Unknown]
  - Condition aggravated [Recovered/Resolved]
  - Sensory loss [Recovering/Resolving]
  - Vertigo [Recovering/Resolving]
  - Borrelia infection [Unknown]
  - Sleep disorder due to a general medical condition [Recovered/Resolved]
  - Fatigue [Recovering/Resolving]
  - Abnormal loss of weight [Recovered/Resolved]
  - Muscle atrophy [Not Recovered/Not Resolved]
  - Myalgia [Unknown]
  - Sjogren^s syndrome [Recovering/Resolving]
  - Food intolerance [Unknown]
  - Panic attack [Recovering/Resolving]
  - Neuralgia [Recovering/Resolving]
  - Gait inability [Unknown]
  - Balance disorder [Unknown]
  - Paraesthesia [Unknown]
  - Tendon disorder [None]
  - Diarrhoea [Recovered/Resolved]
  - Suicidal ideation [None]
  - Conjunctival disorder [Recovering/Resolving]
  - Fatigue [Recovering/Resolving]
  - Epstein-Barr virus infection [Unknown]
  - Gastrointestinal disorder [Unknown]
  - Dry eye [Recovering/Resolving]
  - Wheelchair user [Recovering/Resolving]
  - Muscle spasms [Recovering/Resolving]
  - Neurodegenerative disorder [Not Recovered/Not Resolved]
  - Dysbiosis [Recovering/Resolving]
  - Contusion [Recovering/Resolving]
  - Sensory disturbance [Unknown]

NARRATIVE: CASE EVENT DATE: 2016
